FAERS Safety Report 4322609-6 (Version None)
Quarter: 2004Q1

REPORT INFORMATION
  Report Type: 
  Country: None (occurrence: None)
  Receive Date: 20040324
  Receipt Date: 19961227
  Transmission Date: 20041129
  Serious: Yes (Hospitalization)
  Sender: FDA-Public Use
  Company Number: WAES 96126196

PATIENT
  Age: 5 Year
  Sex: Male
  Weight: 20 kg

DRUGS (3)
  1. THIABENDAZOLE [Suspect]
     Indication: TOXOCARIASIS
     Route: 048
     Dates: start: 19960612, end: 19960618
  2. THIABENDAZOLE [Suspect]
     Route: 048
     Dates: start: 19960626, end: 19960705
  3. THIABENDAZOLE [Suspect]
     Route: 048
     Dates: start: 19960710, end: 19960720

REACTIONS (5)
  - EOSINOPHIL COUNT INCREASED [None]
  - ERYTHEMA NODOSUM [None]
  - HEPATOMEGALY [None]
  - PYREXIA [None]
  - SKIN LESION [None]
